FAERS Safety Report 7349654-0 (Version None)
Quarter: 2011Q1

REPORT INFORMATION
  Report Type: 
  Country: None (occurrence: None)
  Receive Date: 20110314
  Receipt Date: 20110209
  Transmission Date: 20110831
  Serious: No
  Sender: FDA-Public Use
  Company Number: A0912955A

PATIENT
  Age: 49 Year
  Sex: Female
  Weight: 131.8 kg

DRUGS (15)
  1. HYDROCODONE [Concomitant]
     Dosage: 500MG AS REQUIRED
  2. OMEPRAZOLE [Concomitant]
     Dosage: 20MG PER DAY
  3. ALLOPURINOL [Concomitant]
     Dosage: 300MG PER DAY
  4. LEVOTHYROXINE [Concomitant]
     Dosage: .15MCG PER DAY
  5. HYDROCHLOROTHIAZIDE [Concomitant]
  6. AUGMENTIN '125' [Suspect]
     Indication: BRONCHITIS
     Dosage: 875MG TWICE PER DAY
     Route: 065
     Dates: end: 20101210
  7. METAXALONE [Concomitant]
     Indication: BACK DISORDER
     Dosage: 800MG THREE TIMES PER DAY
  8. ESCITALOPRAM [Concomitant]
     Indication: DEPRESSION
     Dosage: 10MG PER DAY
  9. IBUPROFEN [Concomitant]
     Dosage: 800MG AS REQUIRED
  10. OMNICEF [Suspect]
     Indication: BRONCHITIS
     Dosage: 300MG TWICE PER DAY
     Route: 065
  11. HUMIRA [Suspect]
     Indication: RHEUMATOID ARTHRITIS
     Dosage: 40MG SEE DOSAGE TEXT
     Route: 065
  12. ALISKIREN [Concomitant]
  13. FUROSEMIDE [Concomitant]
     Dosage: 40MG PER DAY
  14. METHOTREXATE [Concomitant]
  15. FOLIC ACID [Concomitant]
     Dosage: 1MG PER DAY

REACTIONS (3)
  - SWELLING FACE [None]
  - OEDEMA PERIPHERAL [None]
  - BRONCHITIS [None]
